FAERS Safety Report 5760365-5 (Version None)
Quarter: 2008Q2

REPORT INFORMATION
  Report Type: 
  Country: None (occurrence: None)
  Receive Date: 20080602
  Receipt Date: 20080516
  Transmission Date: 20081010
  Serious: Yes (Death)
  Sender: FDA-Public Use
  Company Number: 2008AL005449

PATIENT
  Sex: Female

DRUGS (1)
  1. DIGOXIN [Suspect]

REACTIONS (10)
  - CARDIOACTIVE DRUG LEVEL INCREASED [None]
  - CONFUSIONAL STATE [None]
  - DECREASED APPETITE [None]
  - DIABETES MELLITUS [None]
  - DIALYSIS [None]
  - FALL [None]
  - HEAD INJURY [None]
  - LACERATION [None]
  - NAUSEA [None]
  - RENAL FAILURE [None]
